FAERS Safety Report 22900811 (Version 2)
Quarter: 2024Q1

REPORT INFORMATION
  Report Type: Spontaneous
  Country: JP (occurrence: JP)
  Receive Date: 20230904
  Receipt Date: 20240318
  Transmission Date: 20240409
  Serious: Yes (Other)
  Sender: FDA-Public Use
  Company Number: JP-ASTELLAS-2023JP003901

PATIENT
  Age: 62 Year
  Sex: Female

DRUGS (2)
  1. PADCEV [Suspect]
     Active Substance: ENFORTUMAB VEDOTIN-EJFV
     Indication: Transitional cell carcinoma
     Dosage: 1.25 MG/KG, ONCE WEEKLY X3 TIMES, SUSPENDED AT WEEK 4
     Route: 041
     Dates: start: 20230208, end: 20230315
  2. PADCEV [Suspect]
     Active Substance: ENFORTUMAB VEDOTIN-EJFV
     Dosage: 1 MG/KG, ONCE WEEKLY X3 TIMES, SUSPENDED AT WEEK 4
     Route: 041
     Dates: start: 20230405, end: 202308

REACTIONS (4)
  - Dehydration [Recovered/Resolved]
  - Skin disorder [Recovered/Resolved]
  - Decreased appetite [Recovered/Resolved]
  - Meningioma [Recovered/Resolved]

NARRATIVE: CASE EVENT DATE: 20230201
